FAERS Safety Report 8916190 (Version 1)
Quarter: 2012Q4

REPORT INFORMATION
  Report Type: 
  Country: FR (occurrence: FR)
  Receive Date: 20121120
  Receipt Date: 20121120
  Transmission Date: 20130627
  Serious: Yes (Hospitalization)
  Sender: FDA-Public Use
  Company Number: FR-VIIV HEALTHCARE LIMITED-B0719460A

PATIENT
  Age: 0 None
  Sex: Female
  Weight: 2.2 kg

DRUGS (3)
  1. KIVEXA [Suspect]
     Indication: HIV INFECTION
     Dosage: 600MG Per day
     Route: 064
     Dates: start: 201001
  2. RETROVIR [Suspect]
     Indication: ANTIVIRAL PROPHYLAXIS
     Dosage: 200MG Unknown
     Route: 064
     Dates: start: 20110423, end: 20110423
  3. VIRAMUNE [Suspect]
     Indication: HIV INFECTION
     Dosage: 200MG Twice per day
     Route: 064
     Dates: start: 200506

REACTIONS (7)
  - Foetal growth restriction [Unknown]
  - Foetal heart rate disorder [Recovered/Resolved]
  - Neonatal anoxia [Recovered/Resolved]
  - Pulmonary arterial hypertension [Not Recovered/Not Resolved]
  - Foetal exposure during pregnancy [Unknown]
  - Caesarean section [None]
  - Neonatal aspiration [None]
